FAERS Safety Report 5281265-3 (Version None)
Quarter: 2007Q1

REPORT INFORMATION
  Report Type: 
  Country: None (occurrence: None)
  Receive Date: 20061218
  Receipt Date: 20060303
  Transmission Date: 20070707
  Serious: Yes (Hospitalization)
  Sender: FDA-Public Use
  Company Number: US200603001734

PATIENT
  Sex: Female

DRUGS (5)
  1. HUMULIN R [Suspect]
     Indication: DIABETES MELLITUS INSULIN-DEPENDENT
  2. HUMULIN N [Suspect]
     Indication: DIABETES MELLITUS INSULIN-DEPENDENT
  3. INSULIN, ANIMAL (INSULIN, ANIMAL UNKNOWN FORMULATION) UNKNOWN [Suspect]
     Indication: DIABETES MELLITUS INSULIN-DEPENDENT
  4. INSULIN, ANIMAL (INSULIN, ANIMAL UNKNOWN FORMULATION) UNKNOWN [Suspect]
     Indication: DIABETES MELLITUS INSULIN-DEPENDENT
  5. INSULIN, ANIMAL (INSULIN, ANIMAL UNKNOWN FORMULATION) UNKNOWN [Suspect]
     Indication: DIABETES MELLITUS INSULIN-DEPENDENT

REACTIONS (3)
  - BLOOD GLUCOSE FLUCTUATION [None]
  - DRUG EXPOSURE DURING PREGNANCY [None]
  - HYPOGLYCAEMIA [None]
